FAERS Safety Report 4301168-8 (Version None)
Quarter: 2004Q1

REPORT INFORMATION
  Report Type: 
  Country: None (occurrence: None)
  Receive Date: 20040218
  Receipt Date: 20031023
  Transmission Date: 20041129
  Serious: No
  Sender: FDA-Public Use
  Company Number: 2003-10-2643

PATIENT
  Sex: Male

DRUGS (2)
  1. RIBAVIRIN [Suspect]
     Dosage: UNKNOWN ORAL
  2. PEG-INTRON [Suspect]
     Dosage: UNKOWN SUBCUTANEOUS

REACTIONS (1)
  - RASH [None]
